FAERS Safety Report 8576748-4 (Version None)
Quarter: 2012Q3

REPORT INFORMATION
  Report Type: 
  Country: None (occurrence: None)
  Receive Date: 20120807
  Receipt Date: 20120403
  Transmission Date: 20120928
  Serious: Yes (Death, Hospitalization)
  Sender: FDA-Public Use
  Company Number: DE-CELGENEUS-062-21660-12061167

PATIENT
  Age: 67 Year
  Sex: Female
  Weight: 60 kg

DRUGS (10)
  1. DEXAMETHASONE [Concomitant]
     Route: 065
     Dates: start: 20111103, end: 20111103
  2. ABRAXANE [Suspect]
     Dosage: 12.381 MILLIGRAM/SQ. METER
     Route: 065
     Dates: start: 20111103, end: 20111103
  3. DEXAMETHASONE [Concomitant]
     Route: 065
     Dates: start: 20110825, end: 20110825
  4. ARIMIDEX [Concomitant]
     Indication: PALLIATIVE CARE
     Route: 065
     Dates: start: 20060101
  5. GRANISETRON [Concomitant]
     Route: 065
     Dates: start: 20111103, end: 20111103
  6. ABRAXANE [Suspect]
     Dosage: 12.381 MILLIGRAM/SQ. METER
     Route: 065
     Dates: start: 20110915, end: 20110915
  7. GRANISETRON [Concomitant]
     Route: 065
     Dates: start: 20110915, end: 20110915
  8. GRANISETRON [Concomitant]
     Route: 065
     Dates: start: 20110825, end: 20110825
  9. DEXAMETHASONE [Concomitant]
     Route: 065
     Dates: start: 20110915, end: 20110915
  10. ABRAXANE [Suspect]
     Dosage: 12.381 MILLIGRAM/SQ. METER
     Route: 065
     Dates: start: 20110825, end: 20110825

REACTIONS (10)
  - NEOPLASM PROGRESSION [None]
  - RASH [None]
  - GENERALISED OEDEMA [None]
  - ASCITES [None]
  - THROMBOCYTOPENIA [None]
  - BLOOD ALKALINE PHOSPHATASE INCREASED [None]
  - DEATH [None]
  - OEDEMA PERIPHERAL [None]
  - ASPARTATE AMINOTRANSFERASE INCREASED [None]
  - ALANINE AMINOTRANSFERASE INCREASED [None]
